FAERS Safety Report 18500518 (Version 3)
Quarter: 2021Q1

REPORT INFORMATION
  Report Type: Spontaneous
  Country: ES (occurrence: ES)
  Receive Date: 20201113
  Receipt Date: 20210121
  Transmission Date: 20210419
  Serious: Yes (Hospitalization, Other)
  Sender: FDA-Public Use
  Company Number: NVSC2020ES303265

PATIENT
  Age: 74 Year
  Sex: Male

DRUGS (10)
  1. RAMIPRIL. [Suspect]
     Active Substance: RAMIPRIL
     Indication: CARDIAC FAILURE
     Dosage: 1.25 MG, Q24H
     Route: 065
     Dates: start: 201709, end: 201710
  2. NEBIVOLOL. [Concomitant]
     Active Substance: NEBIVOLOL
     Indication: CARDIAC FAILURE
     Dosage: UNK
     Route: 065
  3. CALCIUM POLYSTYRENE SULPHONATE [Suspect]
     Active Substance: CALCIUM POLYSTYRENE SULFONATE
     Indication: HYPERKALAEMIA
     Dosage: UNK
     Route: 065
     Dates: start: 2017
  4. PATIROMER [Suspect]
     Active Substance: PATIROMER
     Indication: HYPERKALAEMIA
     Dosage: 8.4 G, Q24H
     Route: 065
     Dates: start: 201712
  5. NEBIVOLOL. [Concomitant]
     Active Substance: NEBIVOLOL
     Indication: CARDIAC FAILURE CHRONIC
     Dosage: 10 MG, QD (INITIAL DOSAGE NOT STATED. UP?TITRATION OF NEBIVOLOL UP TO 10MG/DAY WAS SUCCESSF)
     Route: 065
     Dates: start: 201707, end: 201709
  6. ENALAPRIL [Suspect]
     Active Substance: ENALAPRIL
     Indication: CARDIAC FAILURE CHRONIC
     Dosage: 10 MG
     Route: 065
     Dates: start: 201707, end: 201708
  7. ENALAPRIL [Suspect]
     Active Substance: ENALAPRIL
     Indication: CARDIAC FAILURE
  8. EPLERENONE. [Suspect]
     Active Substance: EPLERENONE
     Indication: CARDIAC FAILURE CHRONIC
     Dosage: 25 MG
     Route: 065
     Dates: start: 201707, end: 201708
  9. EPLERENONE. [Suspect]
     Active Substance: EPLERENONE
     Indication: CARDIAC FAILURE
  10. PATIROMER [Suspect]
     Active Substance: PATIROMER
     Dosage: 16.8 G, Q24H
     Route: 065
     Dates: start: 201801

REACTIONS (4)
  - Renal impairment [Recovered/Resolved]
  - Gastric disorder [Unknown]
  - Off label use [Unknown]
  - Hyperkalaemia [Recovered/Resolved]

NARRATIVE: CASE EVENT DATE: 2017
